FAERS Safety Report 4740457-X (Version None)
Quarter: 2005Q3

REPORT INFORMATION
  Report Type: 
  Country: None (occurrence: None)
  Receive Date: 20050729
  Receipt Date: 20040713
  Transmission Date: 20060218
  Serious: Yes (Other)
  Sender: FDA-Public Use
  Company Number: US-SHR-03-014480

PATIENT
  Age: 28 Year
  Sex: Female
  Weight: 81.6 kg

DRUGS (1)
  1. MAGNEVIST [Suspect]
     Indication: NUCLEAR MAGNETIC RESONANCE IMAGING
     Dosage: 18 ML, 1 DOSE, INTRAVENOUS
     Route: 042
     Dates: start: 20030915, end: 20030915

REACTIONS (2)
  - CONVULSION [None]
  - INJECTION SITE REACTION [None]
